FAERS Safety Report 5982351-2 (Version None)
Quarter: 2008Q4

REPORT INFORMATION
  Report Type: 
  Country: None (occurrence: None)
  Receive Date: 20081208
  Receipt Date: 20081126
  Transmission Date: 20090506
  Serious: Yes (Hospitalization)
  Sender: FDA-Public Use
  Company Number: US-BIOGENIDEC-2008BI014665

PATIENT
  Age: 62 Year
  Sex: Female

DRUGS (11)
  1. TYSABRI [Suspect]
     Indication: MULTIPLE SCLEROSIS
     Route: 042
     Dates: start: 20080312, end: 20080409
  2. ZOLOFT [Concomitant]
  3. BACLOFEN [Concomitant]
  4. NEURONTIN [Concomitant]
  5. TYLENOL (CAPLET) [Concomitant]
  6. CALMOSEPTINE OINTMENT [Concomitant]
  7. IBUPROFEN TABLETS [Concomitant]
  8. ADVAIR HFA [Concomitant]
  9. MUCINEX [Concomitant]
  10. DETROL [Concomitant]
  11. COMBIVENT [Concomitant]

REACTIONS (5)
  - CELLULITIS [None]
  - ENCEPHALOPATHY [None]
  - MULTIPLE SCLEROSIS RELAPSE [None]
  - PNEUMONIA [None]
  - UROSEPSIS [None]
